FAERS Safety Report 8064997 (Version 2)
Quarter: 2014Q1

REPORT INFORMATION
  Report Type: Spontaneous
  Country: US (occurrence: None)
  Receive Date: 20110711
  Receipt Date: 20140219
  Transmission Date: 20141002
  Serious: Yes (Other)
  Sender: FDA-Public Use
  Company Number: IPC201103-000340

PATIENT
  Sex: 0

DRUGS (2)
  1. METOCLOPRAMIDE HYDROCHLORIDE [Suspect]
     Route: 048
     Dates: start: 200904, end: 200907
  2. REGLAN [Suspect]
     Route: 048
     Dates: start: 200904, end: 200907

REACTIONS (9)
  - Tardive dyskinesia [None]
  - Akathisia [None]
  - Extrapyramidal disorder [None]
  - Tremor [None]
  - Neuroleptic malignant syndrome [None]
  - Parkinson^s disease [None]
  - Bradykinesia [None]
  - Dyskinesia [None]
  - Gait disturbance [None]
